FAERS Safety Report 16487143 (Version 1)
Quarter: 2019Q2

REPORT INFORMATION
  Report Type: Spontaneous
  Country: US (occurrence: US)
  Receive Date: 20190627
  Receipt Date: 20190627
  Transmission Date: 20190711
  Serious: No
  Sender: FDA-Public Use
  Company Number: US-GALDERMA-US19020405

PATIENT
  Age: 14 Year
  Sex: Female

DRUGS (6)
  1. PROACTIV DEEP CLEANSING WASH [Concomitant]
     Active Substance: SALICYLIC ACID
     Dosage: 0.1%
     Route: 061
     Dates: start: 20190321, end: 20190326
  2. PROACTIV GREEN TEA MOISTURIZER [Concomitant]
     Active Substance: COSMETICS
     Dosage: 0.1%
     Route: 061
     Dates: start: 20190321, end: 20190326
  3. PROACTIV MD DEEP CLEANSING FACE WASH [Concomitant]
     Active Substance: COSMETICS
     Dosage: 0.1%
     Route: 061
     Dates: start: 20190321, end: 20190326
  4. PROACTIV REDNESS RELIEF SERUM [Concomitant]
     Dosage: 0.1%
     Route: 061
     Dates: start: 20190321, end: 20190326
  5. PROACTIV DAILY OIL CONTROL [Concomitant]
     Dosage: 0.1%
     Route: 061
     Dates: start: 20190321, end: 20190326
  6. PROACTIV MD ADAPALENE ACNE TREATMENT [Suspect]
     Active Substance: ADAPALENE
     Indication: PRODUCT USED FOR UNKNOWN INDICATION
     Dosage: 0.1%
     Route: 061
     Dates: start: 20190321, end: 20190326

REACTIONS (6)
  - Overdose [Recovered/Resolved]
  - Inappropriate schedule of product administration [Recovered/Resolved]
  - Erythema [Recovering/Resolving]
  - Rash erythematous [Recovering/Resolving]
  - Skin burning sensation [Recovering/Resolving]
  - Skin exfoliation [Recovering/Resolving]

NARRATIVE: CASE EVENT DATE: 20190321
